FAERS Safety Report 6532859-6 (Version None)
Quarter: 2010Q1

REPORT INFORMATION
  Report Type: 
  Country: None (occurrence: None)
  Receive Date: 20100111
  Receipt Date: 20091211
  Transmission Date: 20100710
  Serious: No
  Sender: FDA-Public Use
  Company Number: US-BAYER-200917863BCC

PATIENT
  Age: 48 Year
  Sex: Female
  Weight: 64 kg

DRUGS (2)
  1. ALEVE (CAPLET) [Suspect]
     Indication: TOOTHACHE
     Dosage: UNIT DOSE: 220 MG
     Route: 048
     Dates: start: 20091209
  2. VITAMINS [Concomitant]
     Route: 065

REACTIONS (1)
  - TOOTHACHE [None]
